FAERS Safety Report 6848107-3 (Version None)
Quarter: 2010Q3

REPORT INFORMATION
  Report Type: 
  Country: None (occurrence: None)
  Receive Date: 20100716
  Receipt Date: 20100708
  Transmission Date: 20110219
  Serious: Yes (Death, Hospitalization)
  Sender: FDA-Public Use
  Company Number: A0869240A

PATIENT
  Age: 64 Year
  Sex: Female

DRUGS (4)
  1. ARIXTRA [Suspect]
     Indication: DEEP VEIN THROMBOSIS
     Dosage: 7.5MG PER DAY
     Route: 058
     Dates: end: 20100618
  2. TARCEVA [Concomitant]
  3. HEPARIN [Concomitant]
  4. UNKNOWN [Concomitant]

REACTIONS (3)
  - DEATH [None]
  - HEPATIC CANCER METASTATIC [None]
  - PANCREATIC CARCINOMA METASTATIC [None]
